FAERS Safety Report 12289249 (Version 1)
Quarter: 2016Q2

REPORT INFORMATION
  Report Type: Spontaneous
  Country: US (occurrence: None)
  Receive Date: 20160420
  Receipt Date: 20160420
  Transmission Date: 20160815
  Serious: Yes (Hospitalization)
  Sender: FDA-Public Use
  Company Number: None

PATIENT
  Age: 28 Year
  Sex: Female
  Weight: 45.36 kg

DRUGS (5)
  1. VENLAFAXINE/EFFEXOR [Concomitant]
  2. LAMOTRIGINE ER 100MG TABLETS, 100 MG ZYDUS; PAR PHARM [Suspect]
     Active Substance: LAMOTRIGINE
     Indication: DEPRESSION
     Dosage: 30 TABLET(S) AT BEDTIME TAKEN BY MOUTH
     Route: 048
     Dates: start: 20150301, end: 20150901
  3. PRENATAL VITAMIN [Concomitant]
     Active Substance: VITAMINS
  4. L-METHYLFOLATE [Concomitant]
  5. OMEPRAZOLE. [Concomitant]
     Active Substance: OMEPRAZOLE

REACTIONS (17)
  - Impaired work ability [None]
  - Post-traumatic amnestic disorder [None]
  - Burning sensation [None]
  - Weight decreased [None]
  - Hair disorder [None]
  - Constipation [None]
  - Feeding disorder [None]
  - Skin disorder [None]
  - Anger [None]
  - Libido increased [None]
  - Dyspepsia [None]
  - Night sweats [None]
  - Abdominal pain upper [None]
  - Malnutrition [None]
  - Nausea [None]
  - Muscle spasms [None]
  - Depression [None]

NARRATIVE: CASE EVENT DATE: 20150301
